FAERS Safety Report 11272098 (Version 1)
Quarter: 2015Q3

REPORT INFORMATION
  Report Type: Spontaneous
  Country: US (occurrence: None)
  Receive Date: 20150713
  Receipt Date: 20150713
  Transmission Date: 20151125
  Serious: Yes (Life-Threatening, Disabling, Other)
  Sender: FDA-Public Use
  Company Number: None

PATIENT
  Age: 47 Year
  Sex: Female
  Weight: 77.11 kg

DRUGS (10)
  1. CHERRY CONCENTRATE [Concomitant]
  2. PRAVASTATIN [Concomitant]
     Active Substance: PRAVASTATIN\PRAVASTATIN SODIUM
  3. LEVOTHYROXIN [Concomitant]
     Active Substance: LEVOTHYROXINE
  4. ALLOPURINOL 300 MG MYLAN FB:RJP-CRC-DS:30 [Suspect]
     Active Substance: ALLOPURINOL
     Dosage: TAKEN BY MOUTH
     Dates: start: 20150531, end: 20150615
  5. POTASSIUM [Concomitant]
     Active Substance: POTASSIUM
  6. LASIX [Concomitant]
     Active Substance: FUROSEMIDE
  7. MULTIVITAMIN [Concomitant]
     Active Substance: VITAMINS
  8. ALLOPURINOL 300 MG MYLAN FB:RJP-CRC-DS:30 [Suspect]
     Active Substance: ALLOPURINOL
     Indication: GOUT
     Dosage: TAKEN BY MOUTH
     Dates: start: 20150531, end: 20150615
  9. FISH OIL [Concomitant]
     Active Substance: FISH OIL
  10. VITAMIN C [Concomitant]
     Active Substance: ASCORBIC ACID

REACTIONS (18)
  - Inflammation [None]
  - Feeling cold [None]
  - Urticaria [None]
  - Abasia [None]
  - Feeling abnormal [None]
  - Haemorrhage [None]
  - Arthralgia [None]
  - Pruritus [None]
  - Erythema [None]
  - Peripheral swelling [None]
  - Blister [None]
  - Mobility decreased [None]
  - Rash generalised [None]
  - Nausea [None]
  - Joint swelling [None]
  - Skin exfoliation [None]
  - Pain [None]
  - Discomfort [None]

NARRATIVE: CASE EVENT DATE: 20150711
